FAERS Safety Report 10023496 (Version 1)
Quarter: 2014Q1

REPORT INFORMATION
  Report Type: Spontaneous
  Country: US (occurrence: None)
  Receive Date: 20140319
  Receipt Date: 20140319
  Transmission Date: 20141002
  Serious: Yes (Disabling)
  Sender: FDA-Public Use
  Company Number: None

PATIENT
  Age: 32 Year
  Sex: Male
  Weight: 87.09 kg

DRUGS (2)
  1. MUSCLE MARINADE [Suspect]
     Indication: MALNUTRITION
     Dosage: 1 SCOOP, ASS NEEDED  TAKEN BY MOUTH
     Route: 048
     Dates: start: 20140203, end: 20140311
  2. DMAA [Suspect]

REACTIONS (4)
  - Tension headache [None]
  - Suspected counterfeit product [None]
  - Tinnitus [None]
  - Product physical consistency issue [None]
